FAERS Safety Report 8226435-7 (Version None)
Quarter: 2012Q1

REPORT INFORMATION
  Report Type: 
  Country: None (occurrence: None)
  Receive Date: 20120321
  Receipt Date: 20120312
  Transmission Date: 20120608
  Serious: Yes (Hospitalization, Disabling, Other)
  Sender: FDA-Public Use
  Company Number: US-ASTRAZENECA-2010SE10892

PATIENT
  Age: 56 Year
  Sex: Female

DRUGS (25)
  1. SEROQUEL [Suspect]
     Indication: BIPOLAR I DISORDER
     Route: 048
  2. SEROQUEL [Suspect]
     Dosage: 650-700 MG AT NIGHT
     Route: 048
  3. CLARITIN [Concomitant]
  4. VITAMIN D [Concomitant]
  5. MULTI-VITAMIN [Concomitant]
  6. PROTONIX [Concomitant]
  7. NEURONTIN [Concomitant]
  8. CLONAZEPAM [Concomitant]
  9. OMEGA FISH OIL [Concomitant]
  10. CRESTOR [Suspect]
     Route: 048
  11. MAGNESIUM OXIDE [Concomitant]
  12. COLACE [Concomitant]
  13. TOPROL-XL [Suspect]
     Route: 048
  14. SEROQUEL [Suspect]
     Route: 048
  15. SYNTHROID [Concomitant]
  16. FRAGMIN [Concomitant]
  17. ROXICET [Concomitant]
     Dosage: 5 MG/325 MG AS NEEDED
  18. PROGRAF [Concomitant]
     Dosage: 3 MG IN AM AND 2 MG AT BEDTIME
  19. MYFORTIC [Concomitant]
     Dosage: 720 MG IN AM AND 360 MG AT BEDTIME
  20. DEPAKOTE [Concomitant]
  21. TYLENOL [Concomitant]
     Dosage: AS NEEDED
  22. ASPIRIN [Concomitant]
  23. HYDROCHLOROTHIAZIDE [Concomitant]
  24. RISPERDAL [Concomitant]
  25. DEPAKOTE [Concomitant]

REACTIONS (16)
  - CEREBROVASCULAR ACCIDENT [None]
  - RENAL FAILURE CHRONIC [None]
  - PAIN [None]
  - MYOCARDIAL INFARCTION [None]
  - PSYCHOTIC DISORDER [None]
  - CARDIAC TAMPONADE [None]
  - SUICIDAL IDEATION [None]
  - HYPOTHYROIDISM [None]
  - DRUG DOSE OMISSION [None]
  - MANIA [None]
  - DELUSION [None]
  - LARYNGITIS [None]
  - OSTEOARTHRITIS [None]
  - PYREXIA [None]
  - HYPERCOAGULATION [None]
  - ASTHMA [None]
